FAERS Safety Report 7677901-4 (Version None)
Quarter: 2011Q3

REPORT INFORMATION
  Report Type: 
  Country: None (occurrence: None)
  Receive Date: 20110811
  Receipt Date: 20110805
  Transmission Date: 20111222
  Serious: Yes (Other)
  Sender: FDA-Public Use
  Company Number: US-MERCK-1106USA00675

PATIENT
  Age: 66 Year
  Sex: Male

DRUGS (7)
  1. COREG CR [Concomitant]
     Route: 065
  2. PROCARDIA XL [Concomitant]
     Dosage: AM AND PM
     Route: 065
  3. JANUMET [Suspect]
     Indication: DIABETES MELLITUS
     Route: 048
     Dates: start: 20090806, end: 20110329
  4. JANUVIA [Concomitant]
     Route: 048
  5. FENOGLIDE [Concomitant]
     Route: 065
  6. COZAAR [Concomitant]
     Route: 048
  7. LIPITOR [Concomitant]
     Route: 065

REACTIONS (2)
  - RENAL DISORDER [None]
  - GLOMERULAR FILTRATION RATE DECREASED [None]
